FAERS Safety Report 22231185 (Version 1)
Quarter: 2023Q2

REPORT INFORMATION
  Report Type: Spontaneous
  Country: US (occurrence: None)
  Receive Date: 20230420
  Receipt Date: 20230420
  Transmission Date: 20230722
  Serious: No
  Sender: FDA-Public Use
  Company Number: US-ROCHE-3239403

PATIENT
  Sex: Male

DRUGS (3)
  1. XOFLUZA [Suspect]
     Active Substance: BALOXAVIR MARBOXIL
     Indication: Influenza
     Dosage: UNKNOWN
     Route: 065
     Dates: start: 202212
  2. XOFLUZA [Suspect]
     Active Substance: BALOXAVIR MARBOXIL
     Dosage: NO
     Route: 065
     Dates: start: 202001
  3. XOFLUZA [Suspect]
     Active Substance: BALOXAVIR MARBOXIL
     Route: 065
     Dates: start: 202003

REACTIONS (2)
  - Drug ineffective [Unknown]
  - No adverse event [Unknown]

NARRATIVE: CASE EVENT DATE: 20221201
